FAERS Safety Report 23468082 (Version 3)
Quarter: 2024Q1

REPORT INFORMATION
  Report Type: Spontaneous
  Country: DE (occurrence: DE)
  Receive Date: 20240201
  Receipt Date: 20240208
  Transmission Date: 20240410
  Serious: Yes (Other)
  Sender: FDA-Public Use
  Company Number: DE-CELLTRION INC.-2024DE002292

PATIENT

DRUGS (11)
  1. BEVACIZUMAB [Suspect]
     Active Substance: BEVACIZUMAB
     Indication: Mixed hepatocellular cholangiocarcinoma
     Dosage: UNK
     Route: 065
  2. BEVACIZUMAB [Suspect]
     Active Substance: BEVACIZUMAB
     Indication: Cholangiocarcinoma
     Dosage: UNK
     Route: 065
  3. ATEZOLIZUMAB [Suspect]
     Active Substance: ATEZOLIZUMAB
     Indication: Cholangiocarcinoma
     Dosage: UNKNOWN
     Route: 065
  4. ATEZOLIZUMAB [Concomitant]
     Active Substance: ATEZOLIZUMAB
     Indication: Mixed hepatocellular cholangiocarcinoma
     Dosage: UNK
     Route: 065
  5. GEMCITABINE CISPLATIN [Concomitant]
     Indication: Mixed hepatocellular cholangiocarcinoma
     Dosage: UNK
     Route: 065
  6. IRINOTECAN [Concomitant]
     Active Substance: IRINOTECAN
  7. CISPLATIN [Concomitant]
     Active Substance: CISPLATIN
  8. GEMCITABINE [Concomitant]
     Active Substance: GEMCITABINE
  9. IMATINIB [Concomitant]
     Active Substance: IMATINIB
  10. FLUOROURACIL [Concomitant]
     Active Substance: FLUOROURACIL
  11. LEUCOVORIN [Concomitant]
     Active Substance: LEUCOVORIN\LEUCOVORIN CALCIUM

REACTIONS (8)
  - Mixed hepatocellular cholangiocarcinoma [Recovering/Resolving]
  - Metastases to lymph nodes [Unknown]
  - Metastases to spine [Unknown]
  - Metastases to pleura [Unknown]
  - Metastases to bone [Unknown]
  - Disease progression [Unknown]
  - Off label use [Unknown]
  - Drug ineffective for unapproved indication [Unknown]
